FAERS Safety Report 10802140 (Version 4)
Quarter: 2015Q2

REPORT INFORMATION
  Report Type: Report from Study
  Country: JP (occurrence: JP)
  Receive Date: 20150217
  Receipt Date: 20150414
  Transmission Date: 20150821
  Serious: Yes (Hospitalization)
  Sender: FDA-Public Use
  Company Number: JP-EISAI MEDICAL RESEARCH-EC-2015-004015

PATIENT
  Age: 62 Year
  Sex: Male
  Weight: 65 kg

DRUGS (7)
  1. RABEPRAZOLE [Suspect]
     Active Substance: RABEPRAZOLE
     Indication: GASTROOESOPHAGEAL REFLUX DISEASE
     Route: 048
     Dates: start: 20140430, end: 20140624
  2. LIPACREON [Concomitant]
     Active Substance: PANCRELIPASE
  3. FEBURIC [Concomitant]
     Active Substance: FEBUXOSTAT
  4. BEPRICOR [Concomitant]
     Active Substance: BEPRIDIL
  5. URSO [Concomitant]
     Active Substance: URSODIOL
  6. RABEPRAZOLE [Suspect]
     Active Substance: RABEPRAZOLE
     Dosage: DOUBLE BLIND (MAINTENANCE PERIOD)
     Route: 048
     Dates: start: 20140625, end: 20150209
  7. RIZE [Concomitant]
     Active Substance: CLOTIAZEPAM

REACTIONS (1)
  - Oesophageal ulcer [Recovering/Resolving]

NARRATIVE: CASE EVENT DATE: 20150205
